FAERS Safety Report 19175151 (Version 1)
Quarter: 2021Q2

REPORT INFORMATION
  Report Type: Spontaneous
  Country: FR (occurrence: FR)
  Receive Date: 20210423
  Receipt Date: 20210423
  Transmission Date: 20210717
  Serious: Yes (Life-Threatening, Other)
  Sender: FDA-Public Use
  Company Number: FR-ANIPHARMA-2021-FR-000091

PATIENT
  Age: 60 Year
  Sex: Male
  Weight: 118 kg

DRUGS (9)
  1. CANDESARTAN CILEXETIL. [Suspect]
     Active Substance: CANDESARTAN CILEXETIL
     Indication: HYPERTENSION
     Dosage: 4 MG DAILY
     Route: 048
     Dates: end: 20210313
  2. NADOLOL. [Suspect]
     Active Substance: NADOLOL
     Dosage: 80 MG DAILY
     Route: 048
     Dates: end: 20210313
  3. PANTOPRAZOLE [Suspect]
     Active Substance: PANTOPRAZOLE
     Dosage: 20 MG DAILY
     Route: 048
     Dates: end: 20210313
  4. ASTRAZENECA COVID?19 VACCINE [Suspect]
     Active Substance: AZD-1222
     Dosage: 1 DF ONCE
     Route: 030
     Dates: start: 20210313, end: 20210313
  5. METOJECT [Suspect]
     Active Substance: METHOTREXATE SODIUM
     Dosage: 25 MG/0.5 ML, ONE DOSAGE FORM ONCE A WEEK
     Route: 048
     Dates: end: 20210313
  6. FOLIC ACID. [Suspect]
     Active Substance: FOLIC ACID
     Dosage: 10 MG WEEK
     Route: 048
     Dates: end: 20210313
  7. XARELTO [Suspect]
     Active Substance: RIVAROXABAN
     Dosage: 1 DF DAILY
     Route: 048
     Dates: end: 20210313
  8. FLECAINE [Suspect]
     Active Substance: FLECAINIDE
     Dosage: 2 DF DAILY
     Route: 048
     Dates: end: 20210313
  9. DIFFU K [Suspect]
     Active Substance: POTASSIUM CHLORIDE
     Dosage: 2 DF DAILY
     Route: 048
     Dates: end: 20210313

REACTIONS (1)
  - Acute respiratory distress syndrome [Unknown]

NARRATIVE: CASE EVENT DATE: 20210313
